FAERS Safety Report 12764814 (Version 2)
Quarter: 2016Q3

REPORT INFORMATION
  Report Type: Spontaneous
  Country: GB (occurrence: GB)
  Receive Date: 20160921
  Receipt Date: 20160922
  Transmission Date: 20161109
  Serious: Yes (Other)
  Sender: FDA-Public Use
  Company Number: GB-ROCHE-1831428

PATIENT
  Age: 18 Year
  Sex: Female

DRUGS (1)
  1. ROACTEMRA [Suspect]
     Active Substance: TOCILIZUMAB
     Indication: RHEUMATOID ARTHRITIS
     Route: 042

REACTIONS (15)
  - Malaise [Unknown]
  - Weight decreased [Unknown]
  - Rash [Unknown]
  - Feeding disorder [Unknown]
  - Ill-defined disorder [Unknown]
  - Abdominal pain [Unknown]
  - Abdominal pain upper [Unknown]
  - Fatigue [Unknown]
  - Skin fissures [Unknown]
  - Abdominal distension [Unknown]
  - Panic attack [Unknown]
  - Erythema [Unknown]
  - Eczema [Unknown]
  - Nausea [Unknown]
  - Swelling face [Unknown]
